FAERS Safety Report 17566888 (Version 1)
Quarter: 2020Q1

REPORT INFORMATION
  Report Type: Spontaneous
  Country: IN (occurrence: IN)
  Receive Date: 20200320
  Receipt Date: 20200320
  Transmission Date: 20200409
  Serious: Yes (Other)
  Sender: FDA-Public Use
  Company Number: IN-SA-2020SA067575

PATIENT

DRUGS (1)
  1. LEMTRADA [Suspect]
     Active Substance: ALEMTUZUMAB
     Dosage: UNK
     Route: 065
     Dates: start: 201911

REACTIONS (4)
  - Hyperuricaemia [Unknown]
  - Depression [Unknown]
  - Lymphopenia [Unknown]
  - Tuberculosis [Unknown]

NARRATIVE: CASE EVENT DATE: 202003
